FAERS Safety Report 12689400 (Version 1)
Quarter: 2016Q3

REPORT INFORMATION
  Report Type: Spontaneous
  Country: US (occurrence: US)
  Receive Date: 20160826
  Receipt Date: 20160826
  Transmission Date: 20161109
  Serious: No
  Sender: FDA-Public Use
  Company Number: US-BAYER-2016-162548

PATIENT

DRUGS (1)
  1. MIRALAX [Suspect]
     Active Substance: POLYETHYLENE GLYCOL 3350
     Dosage: ONE 238G BOTTLE OF MIRALAX MIXED WITH 64OZ WITH FLUID (GATORADE, CRYSTALIGHT, VITAWATER)
     Route: 048

REACTIONS (2)
  - Wrong technique in product usage process [None]
  - Off label use [None]
